FAERS Safety Report 9729815 (Version 2)
Quarter: 2013Q4

REPORT INFORMATION
  Report Type: Spontaneous
  Country: US (occurrence: US)
  Receive Date: 20131204
  Receipt Date: 20131204
  Transmission Date: 20140711
  Serious: No
  Sender: FDA-Public Use
  Company Number: US-GILEAD-2009-0022403

PATIENT
  Sex: Female

DRUGS (13)
  1. LETAIRIS [Suspect]
     Indication: COR PULMONALE CHRONIC
     Route: 048
     Dates: start: 20090528
  2. ASA [Concomitant]
  3. LASIX [Concomitant]
  4. PRAVASTATIN [Concomitant]
  5. POTASSIUM [Concomitant]
  6. LYCOPENE [Concomitant]
  7. ALPHA LIPOIC ACID [Concomitant]
  8. OMEGA 3 [Concomitant]
  9. MULTIVITAMIN [Concomitant]
  10. VITAMIN C [Concomitant]
  11. TRAZODONE [Concomitant]
  12. LEVOTHYROXINE [Concomitant]
  13. CELEBREX [Concomitant]

REACTIONS (4)
  - Fatigue [Unknown]
  - Dyspnoea [Unknown]
  - Localised oedema [Not Recovered/Not Resolved]
  - Oedema peripheral [Not Recovered/Not Resolved]
